FAERS Safety Report 9636996 (Version 1)
Quarter: 2013Q4

REPORT INFORMATION
  Report Type: Spontaneous
  Country: US (occurrence: US)
  Receive Date: 20131022
  Receipt Date: 20131022
  Transmission Date: 20140711
  Serious: No
  Sender: FDA-Public Use
  Company Number: US-009507513-1310USA004509

PATIENT
  Sex: Female

DRUGS (1)
  1. DIPROLENE AF [Suspect]
     Indication: PSYCHOTIC DISORDER
     Dosage: UNK UNK, PRN (SPORADICALLY AS NEEDED)
     Dates: start: 1986

REACTIONS (6)
  - Skin fissures [Unknown]
  - Local swelling [Unknown]
  - Haemorrhage [Unknown]
  - Drug ineffective [Unknown]
  - Product quality issue [Unknown]
  - Inappropriate schedule of drug administration [Unknown]
